FAERS Safety Report 19664033 (Version 2)
Quarter: 2021Q3

REPORT INFORMATION
  Report Type: Spontaneous
  Country: US (occurrence: US)
  Receive Date: 20210806
  Receipt Date: 20210806
  Transmission Date: 20211014
  Serious: No
  Sender: FDA-Public Use
  Company Number: US-JNJFOC-20210741319

PATIENT
  Sex: Female

DRUGS (1)
  1. WOMENS ROGAINE UNSCENTED [Suspect]
     Active Substance: MINOXIDIL
     Indication: PRODUCT USED FOR UNKNOWN INDICATION
     Route: 061

REACTIONS (6)
  - Incorrect dose administered [Unknown]
  - Hair disorder [Unknown]
  - Product formulation issue [Unknown]
  - Hair texture abnormal [Unknown]
  - Wrong technique in product usage process [Unknown]
  - Alopecia [Unknown]
